FAERS Safety Report 16722498 (Version 1)
Quarter: 2019Q3

REPORT INFORMATION
  Report Type: Report from Study
  Country: BR (occurrence: BR)
  Receive Date: 20190820
  Receipt Date: 20190820
  Transmission Date: 20191005
  Serious: Yes (Other)
  Sender: FDA-Public Use
  Company Number: PHHY2019BR191212

PATIENT
  Age: 41 Year
  Sex: Female

DRUGS (3)
  1. AMOXICILLIN. [Suspect]
     Active Substance: AMOXICILLIN
     Indication: PNEUMONIA
     Route: 065
  2. AMOXICILLIN AND CLAVULANATE POTASSIU. [Suspect]
     Active Substance: AMOXICILLIN\CLAVULANATE POTASSIUM
     Indication: PNEUMONIA
     Route: 065
  3. COSENTYX [Suspect]
     Active Substance: SECUKINUMAB
     Indication: PRODUCT USED FOR UNKNOWN INDICATION
     Dosage: UNK
     Route: 065
     Dates: start: 20181212

REACTIONS (12)
  - Pyrexia [Unknown]
  - Erythema [Recovering/Resolving]
  - Skin disorder [Unknown]
  - Candida infection [Unknown]
  - Pneumonia [Unknown]
  - Drug hypersensitivity [Unknown]
  - Influenza [Unknown]
  - Injection site pruritus [Unknown]
  - Decreased immune responsiveness [Unknown]
  - Pneumonia viral [Unknown]
  - Gardnerella infection [Unknown]
  - Urticaria [Recovering/Resolving]

NARRATIVE: CASE EVENT DATE: 201906
